FAERS Safety Report 9683732 (Version 3)
Quarter: 2016Q1

REPORT INFORMATION
  Report Type: Spontaneous
  Country: DE (occurrence: DE)
  Receive Date: 20131112
  Receipt Date: 20160203
  Transmission Date: 20160526
  Serious: Yes (Other)
  Sender: FDA-Public Use
  Company Number: DE-BRISTOL-MYERS SQUIBB COMPANY-19795988

PATIENT
  Age: 34 Year
  Sex: Female
  Weight: 77 kg

DRUGS (4)
  1. LEPONEX [Suspect]
     Active Substance: CLOZAPINE
     Indication: SCHIZOPHRENIA
     Dosage: 200 MG, QD
     Route: 065
     Dates: start: 20080408, end: 20081210
  2. FOLIO [Concomitant]
     Active Substance: FOLIC ACID
     Indication: NEURAL TUBE DEFECT
     Dosage: 0.4 MG, QD
     Route: 065
     Dates: start: 20080408, end: 20081210
  3. ABILIFY [Suspect]
     Active Substance: ARIPIPRAZOLE
     Indication: SCHIZOPHRENIA
     Dosage: 10 MG, QD
     Route: 065
     Dates: start: 20080408, end: 20081210
  4. EUTHYROX [Suspect]
     Active Substance: LEVOTHYROXINE SODIUM
     Indication: HYPOTHYROIDISM
     Dosage: 50 ?G, QD
     Route: 065
     Dates: start: 20080408, end: 20081209

REACTIONS (5)
  - Off label use [Unknown]
  - Maternal exposure during pregnancy [Recovered/Resolved]
  - Caesarean section [Unknown]
  - Premature delivery [Unknown]
  - Amniorrhexis [Unknown]

NARRATIVE: CASE EVENT DATE: 200812
